FAERS Safety Report 5664558-7 (Version None)
Quarter: 2008Q1

REPORT INFORMATION
  Report Type: 
  Country: None (occurrence: None)
  Receive Date: 20080312
  Receipt Date: 20080222
  Transmission Date: 20080703
  Serious: Yes (Hospitalization)
  Sender: FDA-Public Use
  Company Number: SPI200800085

PATIENT
  Age: 89 Year
  Sex: Female
  Weight: 59 kg

DRUGS (10)
  1. AMITIZA [Suspect]
     Indication: CONSTIPATION
     Dosage: 24 MCG, BID, ORAL
     Route: 048
     Dates: start: 20060101
  2. AMIODARONE HCL [Concomitant]
  3. PLAVIX [Concomitant]
  4. ZOCOR [Concomitant]
  5. NEXIUM [Concomitant]
  6. THYROID THERAPY [Concomitant]
  7. EXFORGE [Concomitant]
  8. TOPROL-XL [Concomitant]
  9. CLONIDINE [Concomitant]
  10. MIRALAX [Concomitant]

REACTIONS (3)
  - DRUG INEFFECTIVE [None]
  - ELECTROLYTE IMBALANCE [None]
  - HEART RATE IRREGULAR [None]
